FAERS Safety Report 4304331-5 (Version None)
Quarter: 2004Q1

REPORT INFORMATION
  Report Type: 
  Country: None (occurrence: None)
  Receive Date: 20040224
  Receipt Date: 20040209
  Transmission Date: 20041129
  Serious: No
  Sender: FDA-Public Use
  Company Number: 2004-BP-00947BP

PATIENT
  Age: 25 Year
  Sex: Female

DRUGS (3)
  1. VIRAMUNE [Suspect]
     Indication: HIV INFECTION
     Dosage: 400 MG (200 MG), PO; 200 MG (200 MG), PO
     Route: 048
     Dates: start: 20031001
  2. VIRAMUNE [Suspect]
     Indication: HIV INFECTION
     Dosage: 400 MG (200 MG), PO; 200 MG (200 MG), PO
     Route: 048
     Dates: start: 20031014
  3. COMBIVIR [Suspect]
     Indication: HIV INFECTION
     Dosage: 2 DAILY, PO
     Route: 048
     Dates: start: 20031014

REACTIONS (4)
  - COMPLICATIONS OF MATERNAL EXPOSURE TO THERAPEUTIC DRUGS [None]
  - INTRA-UTERINE DEATH [None]
  - LARGE FOR DATES BABY [None]
  - MATERNAL DRUGS AFFECTING FOETUS [None]
